FAERS Safety Report 16184576 (Version 2)
Quarter: 2019Q2

REPORT INFORMATION
  Report Type: Spontaneous
  Country: US (occurrence: US)
  Receive Date: 20190411
  Receipt Date: 20190517
  Transmission Date: 20190711
  Serious: Yes (Hospitalization, Other)
  Sender: FDA-Public Use
  Company Number: US-TEVA-2019-US-1036651

PATIENT
  Age: 70 Year
  Sex: Male

DRUGS (6)
  1. SYNRIBO [Suspect]
     Active Substance: OMACETAXINE MEPESUCCINATE
     Route: 065
     Dates: start: 20180412
  2. TYLENOL [Concomitant]
     Active Substance: ACETAMINOPHEN
  3. IRON [Concomitant]
     Active Substance: IRON
  4. TAMSULOSIN [Concomitant]
     Active Substance: TAMSULOSIN
  5. SYNRIBO [Suspect]
     Active Substance: OMACETAXINE MEPESUCCINATE
     Indication: CHRONIC MYELOID LEUKAEMIA
     Dosage: 2.25MG/0.64ML
     Dates: start: 20190314
  6. FENOFIBRATE. [Concomitant]
     Active Substance: FENOFIBRATE

REACTIONS (3)
  - Thrombocytopenia [Unknown]
  - Platelet count decreased [Unknown]
  - Epistaxis [Unknown]

NARRATIVE: CASE EVENT DATE: 20190403
